FAERS Safety Report 5441571-6 (Version None)
Quarter: 2007Q3

REPORT INFORMATION
  Report Type: 
  Country: None (occurrence: None)
  Receive Date: 20070829
  Receipt Date: 20070823
  Transmission Date: 20080115
  Serious: Yes (Hospitalization)
  Sender: FDA-Public Use
  Company Number: GXKR2007DE07195

PATIENT
  Age: 72 Year
  Sex: Male

DRUGS (2)
  1. RAMIPRIL HEXAL COMP (NGX)(HYDROCHLOROTHIAZIDE, RAMIPRIL) TABLET, 5/25M [Suspect]
     Dosage: 2 TABLETS DAILY, ORAL
     Route: 048
     Dates: start: 20060101, end: 20060808
  2. CETIRIZINE HCL [Concomitant]

REACTIONS (2)
  - GUTTATE PSORIASIS [None]
  - PRURITUS GENERALISED [None]
